FAERS Safety Report 21050947 (Version 1)
Quarter: 2022Q3

REPORT INFORMATION
  Report Type: Spontaneous
  Country: US (occurrence: US)
  Receive Date: 20220707
  Receipt Date: 20220707
  Transmission Date: 20221027
  Serious: Yes (Other)
  Sender: FDA-Public Use
  Company Number: US-Shilpa Medicare Limited-SML-US-2022-00756

PATIENT
  Age: 10 Year
  Sex: Male

DRUGS (2)
  1. IMATINIB [Suspect]
     Active Substance: IMATINIB
     Indication: Fibrous dysplasia of jaw
     Dosage: 340 MG/M2/DAY DOSE TO THE NEAREST WHOLE TABLET.
     Route: 048
  2. IMATINIB [Suspect]
     Active Substance: IMATINIB
     Indication: Noonan syndrome

REACTIONS (3)
  - Nausea [Unknown]
  - Off label use [Unknown]
  - Therapeutic response unexpected [Unknown]
